FAERS Safety Report 9008421 (Version 1)
Quarter: 2013Q1

REPORT INFORMATION
  Report Type: Spontaneous
  Country: US (occurrence: US)
  Receive Date: 20130111
  Receipt Date: 20130111
  Transmission Date: 20140127
  Serious: Yes (Other)
  Sender: FDA-Public Use
  Company Number: US-MYLANLABS-2013S1000486

PATIENT
  Sex: Female

DRUGS (6)
  1. ALENDRONATE SODIUM TABLETS USP [Suspect]
     Indication: OSTEOPOROSIS
     Route: 048
     Dates: start: 2005
  2. ALENDRONATE SODIUM TABLETS USP [Suspect]
     Indication: OSTEITIS DEFORMANS
     Route: 048
     Dates: start: 2005
  3. FOSAMAX [Suspect]
     Indication: OSTEOPOROSIS
     Route: 048
     Dates: start: 2005
  4. FOSAMAX [Suspect]
     Indication: OSTEITIS DEFORMANS
     Route: 048
     Dates: start: 2005
  5. FOSAMAX D [Suspect]
     Indication: OSTEOPOROSIS
     Route: 048
     Dates: start: 2005
  6. FOSAMAX D [Suspect]
     Indication: OSTEITIS DEFORMANS
     Route: 048
     Dates: start: 2005

REACTIONS (4)
  - Femur fracture [Not Recovered/Not Resolved]
  - Stress fracture [Not Recovered/Not Resolved]
  - Low turnover osteopathy [Not Recovered/Not Resolved]
  - Bone disorder [Not Recovered/Not Resolved]
